FAERS Safety Report 18951263 (Version 3)
Quarter: 2021Q1

REPORT INFORMATION
  Report Type: Spontaneous
  Country: US (occurrence: US)
  Receive Date: 20210228
  Receipt Date: 20210318
  Transmission Date: 20210420
  Serious: No
  Sender: FDA-Public Use
  Company Number: US-ASTRAZENECA-2021A049284

PATIENT
  Sex: Male
  Weight: 73.9 kg

DRUGS (1)
  1. BYDUREON BCISE [Suspect]
     Active Substance: EXENATIDE
     Indication: TYPE 2 DIABETES MELLITUS
     Route: 058
     Dates: start: 202008

REACTIONS (4)
  - Weight decreased [Unknown]
  - Product administration error [Unknown]
  - Decreased appetite [Not Recovered/Not Resolved]
  - Device delivery system issue [Unknown]
